FAERS Safety Report 15633658 (Version 2)
Quarter: 2019Q2

REPORT INFORMATION
  Report Type: Spontaneous
  Country: US (occurrence: US)
  Receive Date: 20181119
  Receipt Date: 20190401
  Transmission Date: 20190711
  Serious: Yes (Other)
  Sender: FDA-Public Use
  Company Number: US-SA-2018SA314377

PATIENT
  Age: 68 Year
  Sex: Female
  Weight: 76.64 kg

DRUGS (4)
  1. TAXOL [Concomitant]
     Active Substance: PACLITAXEL
     Dosage: UNK
     Route: 065
  2. TAXOTERE [Suspect]
     Active Substance: DOCETAXEL
     Indication: BREAST CANCER FEMALE
     Dosage: 138 MG, Q3W
     Route: 042
     Dates: start: 20070223, end: 20070223
  3. ADRIAMYCIN [Concomitant]
     Active Substance: DOXORUBICIN HYDROCHLORIDE
     Dosage: UNK
     Route: 065
  4. TAXOTERE [Suspect]
     Active Substance: DOCETAXEL
     Dosage: 138 MG, Q3W
     Route: 042
     Dates: start: 20070406, end: 20070406

REACTIONS (3)
  - Psychological trauma [Unknown]
  - Alopecia [Not Recovered/Not Resolved]
  - Emotional distress [Unknown]

NARRATIVE: CASE EVENT DATE: 2007
